FAERS Safety Report 8299343-3 (Version None)
Quarter: 2012Q2

REPORT INFORMATION
  Report Type: 
  Country: None (occurrence: None)
  Receive Date: 20120416
  Receipt Date: 20120416
  Transmission Date: 20120825
  Serious: No
  Sender: FDA-Public Use
  Company Number: None

PATIENT
  Age: 46 Year
  Sex: Female

DRUGS (1)
  1. MOXIFLOXACIN [Suspect]
     Dates: start: 20080625, end: 20080629

REACTIONS (4)
  - HEPATOTOXICITY [None]
  - HEPATIC FIBROSIS [None]
  - HEPATITIS CHOLESTATIC [None]
  - PANCREATIC DUCT DILATATION [None]
